FAERS Safety Report 6099538-3 (Version None)
Quarter: 2009Q1

REPORT INFORMATION
  Report Type: 
  Country: None (occurrence: None)
  Receive Date: 20090226
  Receipt Date: 20090217
  Transmission Date: 20090719
  Serious: Yes (Hospitalization)
  Sender: FDA-Public Use
  Company Number: 2008SP025751

PATIENT
  Age: 26 Year
  Sex: Male
  Weight: 53 kg

DRUGS (1)
  1. PEG-INTRON [Suspect]
     Indication: HEPATITIS B
     Dosage: 80 MCG; QW; SC
     Route: 058
     Dates: start: 20080201, end: 20081219

REACTIONS (4)
  - ALANINE AMINOTRANSFERASE INCREASED [None]
  - ASPARTATE AMINOTRANSFERASE INCREASED [None]
  - BILIRUBIN CONJUGATED INCREASED [None]
  - BLOOD BILIRUBIN INCREASED [None]
